FAERS Safety Report 7484821-7 (Version None)
Quarter: 2011Q2

REPORT INFORMATION
  Report Type: 
  Country: None (occurrence: None)
  Receive Date: 20110517
  Receipt Date: 20110509
  Transmission Date: 20111010
  Serious: Yes (Death, Life-Threatening)
  Sender: FDA-Public Use
  Company Number: AT-ROCHE-767355

PATIENT
  Sex: Male
  Weight: 75 kg

DRUGS (3)
  1. AVASTIN [Suspect]
     Dosage: 4 CYCLES AND ONE MONOTHERAPY
     Route: 065
     Dates: start: 20101201, end: 20110302
  2. ALIMTA [Concomitant]
     Dosage: 4 CYCLES
  3. CARBOPLATIN [Concomitant]
     Dosage: 4 CYCLES

REACTIONS (3)
  - ASPHYXIA [None]
  - CARDIAC ARREST [None]
  - HAEMOPTYSIS [None]
